FAERS Safety Report 4563284-5 (Version None)
Quarter: 2005Q1

REPORT INFORMATION
  Report Type: 
  Country: None (occurrence: None)
  Receive Date: 20050121
  Receipt Date: 20050105
  Transmission Date: 20050727
  Serious: No
  Sender: FDA-Public Use
  Company Number: A06200500005

PATIENT
  Age: 84 Year
  Sex: Female

DRUGS (6)
  1. STILNOX                        (ZOLPIDEM) [Suspect]
     Indication: INSOMNIA
     Dosage: 10 MG OD/ 10 MG OD
     Route: 048
  2. ELOPRAM (CITALOPRAM HYDROBROMIDE) [Concomitant]
  3. NIMOTOP [Concomitant]
  4. FOSAMAX [Concomitant]
  5. CALCIUM D3                         (CALCIUM CARBONATE + COLECALCIFEROL [Concomitant]
  6. MINIAS                    (LORMETAZEPAM) [Concomitant]

REACTIONS (3)
  - CONVULSION [None]
  - DRUG INEFFECTIVE [None]
  - TRANSIENT ISCHAEMIC ATTACK [None]
